FAERS Safety Report 15114591 (Version 1)
Quarter: 2018Q3

REPORT INFORMATION
  Report Type: Spontaneous
  Country: US (occurrence: US)
  Receive Date: 20180706
  Receipt Date: 20180706
  Transmission Date: 20181010
  Serious: Yes (Other)
  Sender: FDA-Public Use
  Company Number: US-BAYER-2018-122578

PATIENT
  Age: 58 Year
  Sex: Female
  Weight: 63.99 kg

DRUGS (3)
  1. METOPROLOL. [Concomitant]
     Active Substance: METOPROLOL
     Dosage: UNK
  2. ATEROL [Concomitant]
  3. DR. SCHOLLS DURAGEL CALLUS REMOVERS [Suspect]
     Active Substance: SALICYLIC ACID
     Dosage: UNK
     Route: 061
     Dates: start: 20180622

REACTIONS (2)
  - Chemical burn [Not Recovered/Not Resolved]
  - Skin injury [Unknown]
